FAERS Safety Report 10333587 (Version 8)
Quarter: 2014Q4

REPORT INFORMATION
  Report Type: Report from Study
  Country: JP (occurrence: JP)
  Receive Date: 20140723
  Receipt Date: 20141120
  Transmission Date: 20150528
  Serious: Yes (Death, Life-Threatening, Hospitalization)
  Sender: FDA-Public Use
  Company Number: JP-ROCHE-1437384

PATIENT
  Age: 77 Year
  Sex: Female
  Weight: 35.1 kg

DRUGS (49)
  1. ELNEOPA [Concomitant]
     Active Substance: UNSPECIFIED INGREDIENT
     Indication: DECREASED APPETITE
     Route: 042
     Dates: start: 20140702, end: 20140702
  2. TAKEPRON OD [Concomitant]
     Active Substance: LANSOPRAZOLE
     Indication: GASTRITIS
     Route: 048
     Dates: start: 20140628, end: 20140718
  3. MAINTATE [Concomitant]
     Active Substance: BISOPROLOL FUMARATE
     Indication: SINUS TACHYCARDIA
     Route: 048
     Dates: start: 20140629, end: 20140704
  4. SOLULACT [Concomitant]
     Route: 042
     Dates: start: 20140702, end: 20140702
  5. DEXART [Concomitant]
     Active Substance: DEXAMETHASONE SODIUM PHOSPHATE
     Indication: NAUSEA
     Dosage: SELECT IF ONGOING=NO
     Route: 042
     Dates: start: 20140703, end: 20140703
  6. NOVAMIN (JAPAN) [Concomitant]
     Indication: NAUSEA
     Dosage: SELECT IF ONGOING=NO
     Route: 048
     Dates: start: 20140718, end: 20140718
  7. INTRALIPOS [Concomitant]
     Active Substance: SOYBEAN OIL
     Indication: DECREASED APPETITE
     Dosage: SELECT IF ONGOING=NO
     Route: 042
     Dates: start: 20140626, end: 20140627
  8. FUROSEMIDE. [Concomitant]
     Active Substance: FUROSEMIDE
     Indication: OEDEMA
     Dosage: SELECT IF ONGOING=NO
     Route: 048
     Dates: start: 20140628, end: 20140718
  9. DEXALTIN [Concomitant]
     Active Substance: DEXAMETHASONE
     Indication: STOMATITIS
     Route: 061
     Dates: start: 20140710, end: 20140720
  10. AZUNOL [Concomitant]
     Active Substance: SODIUM GUALENATE
     Indication: STOMATITIS
     Dosage: GARGLE LIQUID 4%
     Route: 061
     Dates: start: 20140710, end: 20140720
  11. AZUNOL [Concomitant]
     Active Substance: SODIUM GUALENATE
     Indication: STOMATITIS
     Route: 061
     Dates: start: 20140723, end: 20140723
  12. CISPLATIN. [Suspect]
     Active Substance: CISPLATIN
     Indication: HER-2 POSITIVE GASTRIC CANCER
     Dosage: LAST DOSE PRIOR TO SAE: 02/JUL/2014
     Route: 042
     Dates: start: 20140702, end: 20140702
  13. ZOSYN [Concomitant]
     Active Substance: PIPERACILLIN SODIUM\TAZOBACTAM SODIUM
     Indication: MALIGNANT PLEURAL EFFUSION
     Route: 042
     Dates: start: 20140621, end: 20140625
  14. ALOXI [Concomitant]
     Active Substance: PALONOSETRON HYDROCHLORIDE
     Indication: NAUSEA
     Route: 042
     Dates: start: 20140702, end: 20140702
  15. DECADRON [Concomitant]
     Active Substance: DEXAMETHASONE
     Indication: NAUSEA
     Dosage: SELECT IF ONGOING=NO
     Route: 048
     Dates: start: 20140706, end: 20140707
  16. NOVAMIN (JAPAN) [Concomitant]
     Indication: NAUSEA
     Dosage: SELECT IF ONGOING=NO
     Route: 048
     Dates: start: 20140710, end: 20140717
  17. VEEN-D [Concomitant]
     Active Substance: DEXTROSE
     Indication: DECREASED APPETITE
     Route: 042
     Dates: start: 20140620, end: 20140620
  18. NAUZELIN [Concomitant]
     Active Substance: DOMPERIDONE
     Indication: NAUSEA
     Route: 048
     Dates: start: 20140628, end: 20140704
  19. NAUZELIN [Concomitant]
     Active Substance: DOMPERIDONE
     Indication: NAUSEA
     Dosage: SELECT IF ONGOING=NO
     Route: 048
     Dates: start: 20140710, end: 20140718
  20. FLAGYL [Concomitant]
     Active Substance: METRONIDAZOLE\METRONIDAZOLE HYDROCHLORIDE
     Indication: MALIGNANT PLEURAL EFFUSION
     Route: 048
     Dates: start: 20140630, end: 20140711
  21. EMEND [Concomitant]
     Active Substance: APREPITANT
     Indication: NAUSEA
     Route: 048
     Dates: start: 20140702, end: 20140702
  22. AZUNOL [Concomitant]
     Active Substance: SODIUM GUALENATE
     Dosage: GARGLE LIQUID 4%
     Route: 061
     Dates: start: 20140723, end: 20140723
  23. NORADRENALIN [Concomitant]
     Active Substance: NOREPINEPHRINE\NOREPINEPHRINE BITARTRATE
     Indication: SEPSIS
     Dosage: SELECT IF ONGOING=NO
     Route: 042
     Dates: start: 20140619, end: 20140719
  24. OTSUKA NORMAL SALINE [Concomitant]
     Indication: DECREASED APPETITE
     Dosage: SELECT IF ONGOING=NO
     Route: 042
     Dates: start: 20140614, end: 20140718
  25. TRASTUZUMAB [Suspect]
     Active Substance: TRASTUZUMAB
     Indication: HER-2 POSITIVE GASTRIC CANCER
     Dosage: LOADING DOSE, LAST DOSE PRIOR TO SAE: 02/JUL/2014
     Route: 042
     Dates: start: 20140702, end: 20140702
  26. ELNEOPA [Concomitant]
     Active Substance: UNSPECIFIED INGREDIENT
     Indication: DECREASED APPETITE
     Route: 042
     Dates: start: 20140615, end: 20140625
  27. TOCLASE [Concomitant]
     Active Substance: PENTOXYVERINE
     Indication: MALIGNANT PLEURAL EFFUSION
     Dosage: SELECT IF ONGOING=NO
     Route: 048
     Dates: start: 20140620, end: 20140623
  28. OMEPRAZOLE. [Concomitant]
     Active Substance: OMEPRAZOLE
     Indication: GASTRITIS
     Route: 042
     Dates: start: 20140621, end: 20140627
  29. LASIX [Concomitant]
     Active Substance: FUROSEMIDE
     Indication: OEDEMA
     Dosage: SELECT IF ONGOING=NO
     Route: 042
     Dates: start: 20140621, end: 20140627
  30. ALBUMIN [Concomitant]
     Active Substance: ALBUMIN (HUMAN)
     Indication: HYPOALBUMINAEMIA
     Route: 042
     Dates: start: 20140628, end: 20140701
  31. NORADRENALIN [Concomitant]
     Active Substance: NOREPINEPHRINE\NOREPINEPHRINE BITARTRATE
     Indication: MULTI-ORGAN FAILURE
  32. PLACEBO [Suspect]
     Active Substance: UNSPECIFIED INGREDIENT
     Indication: HER-2 POSITIVE GASTRIC CANCER
     Dosage: LAST DOSE PRIOR TO SAE: 02/JUL/2014
     Route: 042
     Dates: start: 20140702, end: 20140702
  33. CAPECITABINE. [Suspect]
     Active Substance: CAPECITABINE
     Indication: HER-2 POSITIVE GASTRIC CANCER
     Dosage: LAST DOSE PRIOR TO SAE 13/JUL/2014
     Route: 048
     Dates: start: 20140702, end: 20140713
  34. ELNEOPA [Concomitant]
     Active Substance: UNSPECIFIED INGREDIENT
     Indication: DECREASED APPETITE
     Dosage: SELECT IF ONGOING=NO
     Route: 042
     Dates: start: 20140615, end: 20140615
  35. ENSURE.H [Concomitant]
     Indication: DECREASED APPETITE
     Dosage: SELECT IF ONGOING=NO
     Route: 048
     Dates: start: 20140621, end: 20140625
  36. VENECTOMIN [Concomitant]
     Active Substance: CANRENOATE POTASSIUM
     Indication: OEDEMA
     Dosage: SELECT IF ONGOING=NO
     Route: 042
     Dates: start: 20140621, end: 20140627
  37. ALBUMIN [Concomitant]
     Active Substance: ALBUMIN (HUMAN)
     Route: 042
     Dates: start: 20140719, end: 20140723
  38. DECADRON [Concomitant]
     Active Substance: DEXAMETHASONE
     Indication: NAUSEA
     Dosage: SELECT IF ONGOING=NO
     Route: 048
     Dates: start: 20140704, end: 20140705
  39. LOPERAMIDE HCL [Concomitant]
     Active Substance: LOPERAMIDE HYDROCHLORIDE
     Indication: DIARRHOEA
     Route: 048
     Dates: start: 20140718, end: 20140718
  40. PROPETO [Concomitant]
     Indication: ECZEMA
     Dosage: SELECT IF ONGOING=NO DOSE UNIT=G
     Route: 061
     Dates: start: 20140721, end: 20140722
  41. PL [Concomitant]
     Active Substance: ACETAMINOPHEN\CAFFEINE\PROMETHAZINE\SALICYLAMIDE
     Indication: MALIGNANT PLEURAL EFFUSION
     Route: 048
     Dates: start: 20140620, end: 20140623
  42. ZOSYN [Concomitant]
     Active Substance: PIPERACILLIN SODIUM\TAZOBACTAM SODIUM
     Indication: MALIGNANT PLEURAL EFFUSION
     Dosage: SELECT IF ONGOING=NO DOSE UNIT=G
     Route: 042
     Dates: start: 20140620, end: 20140620
  43. ROPION [Concomitant]
     Active Substance: FLURBIPROFEN AXETIL
     Indication: PUNCTURE SITE PAIN
     Route: 042
     Dates: start: 20140628, end: 20140701
  44. WYSTAL [Concomitant]
     Indication: MALIGNANT PLEURAL EFFUSION
     Dosage: SELECT IF ONGOING=NO DOSE UNIT=G
     Route: 042
     Dates: start: 20140617, end: 20140620
  45. INTRALIPOS [Concomitant]
     Active Substance: SOYBEAN OIL
     Indication: DECREASED APPETITE
     Dosage: SELECT IF ONGOING=NO
     Route: 042
     Dates: start: 20140630, end: 20140701
  46. ALDACTONE [Concomitant]
     Active Substance: SPIRONOLACTONE
     Indication: OEDEMA
     Route: 048
     Dates: start: 20140628, end: 20140711
  47. EMEND [Concomitant]
     Active Substance: APREPITANT
     Indication: NAUSEA
     Route: 048
     Dates: start: 20140703, end: 20140704
  48. DEXART [Concomitant]
     Active Substance: DEXAMETHASONE SODIUM PHOSPHATE
     Indication: NAUSEA
     Dosage: SELECT IF ONGOING=NO
     Route: 042
     Dates: start: 20140702, end: 20140702
  49. DEXALTIN [Concomitant]
     Active Substance: DEXAMETHASONE
     Indication: STOMATITIS
     Dosage: SELECT IF ONGOING=NO DOSE UNIT=G
     Route: 061
     Dates: start: 20140723, end: 20140723

REACTIONS (7)
  - Multi-organ failure [Fatal]
  - Decreased appetite [Not Recovered/Not Resolved]
  - Lung infection [Not Recovered/Not Resolved]
  - Enterocolitis [Not Recovered/Not Resolved]
  - Disseminated intravascular coagulation [Not Recovered/Not Resolved]
  - Pancytopenia [Not Recovered/Not Resolved]
  - Sepsis [Not Recovered/Not Resolved]

NARRATIVE: CASE EVENT DATE: 20140713
